FAERS Safety Report 15753871 (Version 1)
Quarter: 2018Q4

REPORT INFORMATION
  Report Type: Spontaneous
  Country: IT (occurrence: IT)
  Receive Date: 20181222
  Receipt Date: 20181222
  Transmission Date: 20190205
  Serious: Yes (Death, Other)
  Sender: FDA-Public Use
  Company Number: PHHY2018IT189943

PATIENT
  Age: 53 Year
  Sex: Female

DRUGS (4)
  1. ZYKADIA [Suspect]
     Active Substance: CERITINIB
     Indication: LUNG CANCER METASTATIC
     Dosage: 750 MG, QD
     Route: 048
     Dates: start: 20160715
  2. ZYKADIA [Suspect]
     Active Substance: CERITINIB
     Dosage: 600 MG, QD
     Route: 065
  3. ZYKADIA [Suspect]
     Active Substance: CERITINIB
     Dosage: 600 MG, QD
     Route: 065
  4. ZYKADIA [Suspect]
     Active Substance: CERITINIB
     Dosage: 450 MG, QD
     Route: 065

REACTIONS (9)
  - Multiple organ dysfunction syndrome [Fatal]
  - Nausea [Unknown]
  - Pyrexia [Unknown]
  - Lung cancer metastatic [Fatal]
  - Dyspepsia [Unknown]
  - Oesophagopleural fistula [Unknown]
  - Vomiting [Unknown]
  - Bacterial infection [Fatal]
  - Malignant neoplasm progression [Fatal]

NARRATIVE: CASE EVENT DATE: 201607
